FAERS Safety Report 10496435 (Version 1)
Quarter: 2014Q4

REPORT INFORMATION
  Report Type: Spontaneous
  Country: US (occurrence: US)
  Receive Date: 20141004
  Receipt Date: 20141004
  Transmission Date: 20150528
  Serious: No
  Sender: FDA-Public Use
  Company Number: US-009507513-1409USA011596

PATIENT
  Age: 21 Year
  Sex: Female
  Weight: 81.63 kg

DRUGS (1)
  1. NUVARING [Suspect]
     Active Substance: ETHINYL ESTRADIOL\ETONOGESTREL
     Indication: CONTRACEPTION
     Dosage: 1 DF, Q3W
     Route: 067
     Dates: start: 201409

REACTIONS (3)
  - Product quality issue [Unknown]
  - Device breakage [Not Recovered/Not Resolved]
  - Discomfort [Not Recovered/Not Resolved]

NARRATIVE: CASE EVENT DATE: 201409
